FAERS Safety Report 8116115 (Version 3)
Quarter: 2013Q1

REPORT INFORMATION
  Report Type: Spontaneous
  Country: US (occurrence: US)
  Receive Date: 20110901
  Receipt Date: 20130308
  Transmission Date: 20140127
  Serious: No
  Sender: FDA-Public Use
  Company Number: US-BIOGENIDEC-2011BI032696

PATIENT
  Age: 60 None
  Sex: Male

DRUGS (1)
  1. TYSABRI [Suspect]
     Indication: MULTIPLE SCLEROSIS
     Route: 042
     Dates: start: 20110620

REACTIONS (7)
  - Infusion site extravasation [Not Recovered/Not Resolved]
  - Laceration [Recovered/Resolved]
  - Musculoskeletal stiffness [Unknown]
  - Back pain [Unknown]
  - Infusion site swelling [Recovered/Resolved]
  - Diarrhoea [Recovered/Resolved]
  - Drug ineffective [Not Recovered/Not Resolved]
